FAERS Safety Report 8302427-4 (Version None)
Quarter: 2012Q2

REPORT INFORMATION
  Report Type: 
  Country: None (occurrence: None)
  Receive Date: 20120420
  Receipt Date: 20120321
  Transmission Date: 20120825
  Serious: Yes (Other)
  Sender: FDA-Public Use
  Company Number: CHPA2012US006182

PATIENT
  Age: 51 Year
  Sex: Female

DRUGS (4)
  1. OPIOIDS [Concomitant]
  2. VOLTAREN [Suspect]
     Indication: PAIN
     Dosage: UNK, UNK
     Route: 061
  3. PENNSAID [Concomitant]
     Indication: PAIN
  4. PERCOCET [Concomitant]
     Indication: PAIN

REACTIONS (8)
  - THERAPEUTIC RESPONSE UNEXPECTED [None]
  - OFF LABEL USE [None]
  - ASTHENIA [None]
  - NERVOUS SYSTEM DISORDER [None]
  - FATIGUE [None]
  - DRUG ADMINISTERED AT INAPPROPRIATE SITE [None]
  - DISEASE PROGRESSION [None]
  - DYSPNOEA [None]
